FAERS Safety Report 13007210 (Version 2)
Quarter: 2016Q4

REPORT INFORMATION
  Report Type: Spontaneous
  Country: FR (occurrence: FR)
  Receive Date: 20161207
  Receipt Date: 20161216
  Transmission Date: 20170207
  Serious: Yes (Death, Hospitalization, Other)
  Sender: FDA-Public Use
  Company Number: FR-MYLANLABS-2016M1053128

PATIENT

DRUGS (5)
  1. ATARAX [Suspect]
     Active Substance: HYDROXYZINE\HYDROXYZINE HYDROCHLORIDE
     Dosage: 700 MG
     Route: 048
  2. LYSANXIA [Concomitant]
     Active Substance: PRAZEPAM
     Dosage: 420 MG
     Route: 048
  3. ZOLPIDEM [Suspect]
     Active Substance: ZOLPIDEM\ZOLPIDEM TARTRATE
     Route: 065
  4. SEVIKAR [Suspect]
     Active Substance: AMLODIPINE BESYLATE\OLMESARTAN MEDOXOMIL
     Dosage: 129 TABLETS: OLMESARTAN MEDOXOMIL 5.16G/AMLODIPINE 1.29G
     Route: 048
  5. SEROPLEX [Suspect]
     Active Substance: ESCITALOPRAM OXALATE
     Dosage: 280 MG
     Route: 048

REACTIONS (7)
  - Multiple organ dysfunction syndrome [Fatal]
  - Toxicity to various agents [Unknown]
  - Acute kidney injury [Unknown]
  - Metabolic acidosis [Unknown]
  - Cardiogenic shock [Unknown]
  - Bezoar [Recovered/Resolved]
  - Hyperlactacidaemia [Unknown]
